FAERS Safety Report 14790939 (Version 1)
Quarter: 2018Q2

REPORT INFORMATION
  Report Type: Spontaneous
  Country: FR (occurrence: FR)
  Receive Date: 20180423
  Receipt Date: 20180423
  Transmission Date: 20180711
  Serious: Yes (Other)
  Sender: FDA-Public Use
  Company Number: FR-JNJFOC-20180421470

PATIENT
  Sex: Female

DRUGS (2)
  1. REMICADE [Suspect]
     Active Substance: INFLIXIMAB
     Indication: CROHN^S DISEASE
     Route: 042
  2. VEDOLIZUMAB [Suspect]
     Active Substance: VEDOLIZUMAB
     Indication: CROHN^S DISEASE
     Route: 065

REACTIONS (9)
  - Transient ischaemic attack [Unknown]
  - Rash pustular [Unknown]
  - Lupus-like syndrome [Unknown]
  - Weight increased [Unknown]
  - Staphylococcal infection [Unknown]
  - Anal fistula [Unknown]
  - Anal abscess [Unknown]
  - Hidradenitis [Unknown]
  - Psoriasis [Unknown]

NARRATIVE: CASE EVENT DATE: 2004
